FAERS Safety Report 6187029-0 (Version None)
Quarter: 2009Q2

REPORT INFORMATION
  Report Type: 
  Country: None (occurrence: None)
  Receive Date: 20090512
  Receipt Date: 20090504
  Transmission Date: 20091009
  Serious: Yes (Other)
  Sender: FDA-Public Use
  Company Number: CA-ELI_LILLY_AND_COMPANY-CA200905000463

PATIENT
  Age: 12 Year
  Sex: Male

DRUGS (7)
  1. STRATTERA [Suspect]
     Indication: ATTENTION DEFICIT/HYPERACTIVITY DISORDER
     Dosage: 60 MG, DAILY (1/D)
     Route: 048
     Dates: start: 20080825, end: 20090101
  2. EFFEXOR [Concomitant]
     Dosage: 75 MG, EACH EVENING
     Route: 048
  3. EFFEXOR [Concomitant]
     Dosage: 37.5 MG, OTHER
     Route: 048
  4. LOVAZA [Concomitant]
     Dosage: UNK, UNKNOWN
     Route: 065
  5. RISPERIDONE [Concomitant]
     Dosage: 0.25 MG, 2/D
     Route: 065
  6. RISPERIDONE [Concomitant]
     Dosage: 0.5 MG, EACH EVENING
     Route: 065
  7. VITAMIN B-12 [Concomitant]
     Dosage: UNK, UNKNOWN
     Route: 065

REACTIONS (3)
  - ALANINE AMINOTRANSFERASE INCREASED [None]
  - ASPARTATE AMINOTRANSFERASE INCREASED [None]
  - BLOOD BILIRUBIN INCREASED [None]
